FAERS Safety Report 7198343-4 (Version None)
Quarter: 2011Q1

REPORT INFORMATION
  Report Type: 
  Country: None (occurrence: None)
  Receive Date: 20101223
  Receipt Date: 20101223
  Transmission Date: 20110831
  Serious: Yes (Other)
  Sender: FDA-Public Use
  Company Number: None

PATIENT
  Sex: Male
  Weight: 88.4514 kg

DRUGS (1)
  1. AMIODARONE HCL [Suspect]
     Indication: CORONARY ARTERY BYPASS
     Dosage: 200MG 1X DAY ORAL
     Route: 048
     Dates: start: 20100626, end: 20101005

REACTIONS (1)
  - VISUAL IMPAIRMENT [None]
